FAERS Safety Report 8621964-6 (Version None)
Quarter: 2012Q3

REPORT INFORMATION
  Report Type: 
  Country: None (occurrence: None)
  Receive Date: 20120823
  Receipt Date: 20120823
  Transmission Date: 20120928
  Serious: Yes (Hospitalization)
  Sender: FDA-Public Use
  Company Number: None

PATIENT
  Sex: Female
  Weight: 68 kg

DRUGS (6)
  1. JANUVIA [Concomitant]
  2. IRON [Concomitant]
  3. ATENOLOL [Concomitant]
  4. PRILOSEC [Concomitant]
  5. TAXOL [Suspect]
     Dosage: 477 MG
     Dates: end: 20120726
  6. VITAMIN D [Concomitant]

REACTIONS (4)
  - DIARRHOEA [None]
  - PELVIC DISCOMFORT [None]
  - DYSURIA [None]
  - PELVIC PAIN [None]
